FAERS Safety Report 6115690-5 (Version None)
Quarter: 2009Q1

REPORT INFORMATION
  Report Type: 
  Country: None (occurrence: None)
  Receive Date: 20090313
  Receipt Date: 20090311
  Transmission Date: 20090719
  Serious: Yes (Death, Life-Threatening)
  Sender: FDA-Public Use
  Company Number: FR-B.I. PHARMACEUTICALS,INC./RIDGEFIELD-2009-FF-00146FF

PATIENT
  Sex: Male

DRUGS (4)
  1. ATROVENT 0.50/1ML ADULTES [Suspect]
     Route: 002
     Dates: start: 20081031
  2. OMNIPAQUE 140 [Concomitant]
     Dosage: 300ML
     Route: 042
     Dates: start: 20081106, end: 20081106
  3. INIPOMP [Concomitant]
     Dosage: 40MG
     Route: 048
     Dates: start: 20081030
  4. CLAMOXYL [Concomitant]
     Dosage: 24000MG
     Route: 048
     Dates: start: 20081104

REACTIONS (9)
  - BLOOD DISORDER [None]
  - CARDIO-RESPIRATORY ARREST [None]
  - CONVULSION [None]
  - HEPATIC FAILURE [None]
  - LOSS OF CONSCIOUSNESS [None]
  - MALAISE [None]
  - MULTI-ORGAN FAILURE [None]
  - PARAESTHESIA [None]
  - RENAL FAILURE [None]
